FAERS Safety Report 9659588 (Version 2)
Quarter: 2014Q2

REPORT INFORMATION
  Report Type: Spontaneous
  Country: US (occurrence: None)
  Receive Date: 20131029
  Receipt Date: 20140514
  Transmission Date: 20141212
  Serious: Yes (Other)
  Sender: FDA-Public Use
  Company Number: ADR-2013-01951

PATIENT
  Sex: Female

DRUGS (7)
  1. BACLOFEN [Suspect]
  2. SUFENTANIL (3000 MCG/ML) [Suspect]
  3. PERCOCET [Concomitant]
  4. PREVACID [Concomitant]
  5. EFFEXOR [Concomitant]
  6. CLONIDINE [Suspect]
  7. ROPIVACAINE [Suspect]

REACTIONS (9)
  - Insomnia [None]
  - Muscle spasticity [None]
  - Drug withdrawal syndrome [None]
  - Pain [None]
  - Hypersensitivity [None]
  - Disturbance in attention [None]
  - Device malfunction [None]
  - Device issue [None]
  - Device damage [None]
